FAERS Safety Report 5934187-6 (Version None)
Quarter: 2008Q4

REPORT INFORMATION
  Report Type: 
  Country: None (occurrence: None)
  Receive Date: 20081029
  Receipt Date: 20081028
  Transmission Date: 20090506
  Serious: Yes (Hospitalization)
  Sender: FDA-Public Use
  Company Number: B0543796A

PATIENT
  Sex: Female

DRUGS (4)
  1. PAXIL [Suspect]
     Indication: DEPRESSION
     Dosage: 10MG PER DAY
     Route: 048
     Dates: start: 20081010, end: 20081014
  2. HALCION [Concomitant]
     Route: 048
     Dates: end: 20081014
  3. LEDOLPER [Concomitant]
     Route: 048
     Dates: end: 20081014
  4. BETAMAC T [Concomitant]
     Route: 048
     Dates: start: 20080801, end: 20081014

REACTIONS (2)
  - HEPATIC FUNCTION ABNORMAL [None]
  - PYREXIA [None]
